FAERS Safety Report 10994109 (Version 2)
Quarter: 2016Q3

REPORT INFORMATION
  Report Type: Spontaneous
  Country: BR (occurrence: BR)
  Receive Date: 20150407
  Receipt Date: 20160920
  Transmission Date: 20161109
  Serious: Yes (Hospitalization)
  Sender: FDA-Public Use
  Company Number: BR-PFIZER INC-2015116830

PATIENT
  Age: 62 Year
  Sex: Female
  Weight: 69 kg

DRUGS (3)
  1. FRONTAL [Suspect]
     Active Substance: ALPRAZOLAM
     Indication: SLEEP DISORDER
     Dosage: 0.5 MG, 1X/DAY AT NIGHT
     Route: 048
     Dates: start: 2000
  2. FRONTAL [Suspect]
     Active Substance: ALPRAZOLAM
     Indication: ANXIETY
     Dosage: 0.5 MG, 1X/DAY AT NIGHT
     Route: 048
     Dates: start: 2011
  3. EUTHYROX [Concomitant]
     Active Substance: LEVOTHYROXINE SODIUM
     Indication: THYROID DISORDER
     Dosage: ONE CAPSULE OF 88 MG PER DAY
     Dates: start: 2000

REACTIONS (6)
  - Memory impairment [Unknown]
  - Infarction [Unknown]
  - Depressed mood [Unknown]
  - Dysarthria [Unknown]
  - Anxiety [Unknown]
  - Disorientation [Unknown]

NARRATIVE: CASE EVENT DATE: 201503
